FAERS Safety Report 8990825 (Version 1)
Quarter: 2012Q4

REPORT INFORMATION
  Report Type: Spontaneous
  Country: US (occurrence: None)
  Receive Date: 20121226
  Receipt Date: 20121226
  Transmission Date: 20130627
  Serious: No
  Sender: FDA-Public Use
  Company Number: None

PATIENT
  Age: 66 Year
  Sex: Male
  Weight: 117.94 kg

DRUGS (1)
  1. ALTERIL MAXIMUM STRENGTH 2 TABLETS BIOTAB NUTRACEUTICALS, [Suspect]
     Indication: SLEEP DISORDER THERAPY
     Dosage: 2 tablets once nightly po
     Route: 048
     Dates: start: 20121220, end: 20121220

REACTIONS (2)
  - Product quality issue [None]
  - Poor quality sleep [None]
